FAERS Safety Report 5523456-X (Version None)
Quarter: 2007Q4

REPORT INFORMATION
  Report Type: 
  Country: None (occurrence: None)
  Receive Date: 20071121
  Receipt Date: 20071112
  Transmission Date: 20080405
  Serious: Yes (Hospitalization)
  Sender: FDA-Public Use
  Company Number: US-JNJFOC-20071105203

PATIENT
  Sex: Female
  Weight: 104.33 kg

DRUGS (3)
  1. DURAGESIC-100 [Suspect]
     Route: 062
  2. DURAGESIC-100 [Suspect]
     Indication: PAIN
     Route: 062
  3. PERCOCET [Concomitant]
     Indication: BREAKTHROUGH PAIN
     Dosage: ONE AS NEEDED
     Route: 048

REACTIONS (3)
  - EXPIRED DRUG ADMINISTERED [None]
  - HOSPITALISATION [None]
  - INAPPROPRIATE SCHEDULE OF DRUG ADMINISTRATION [None]
